FAERS Safety Report 17443096 (Version 1)
Quarter: 2020Q1

REPORT INFORMATION
  Report Type: Spontaneous
  Country: US (occurrence: US)
  Receive Date: 20200206
  Receipt Date: 20200206
  Transmission Date: 20200409
  Serious: No
  Sender: FDA-Public Use
  Company Number: None

PATIENT
  Sex: Female

DRUGS (1)
  1. ICATIBANT ACETATE SYR (3-PAK) [Suspect]
     Active Substance: ICATIBANT ACETATE
     Indication: IMMUNOLOGY TEST ABNORMAL
     Dosage: ?          OTHER STRENGTH:30MG/3ML;OTHER FREQUENCY:AS NEEDED;?
     Route: 058
     Dates: start: 20200121

REACTIONS (2)
  - Abdominal distension [None]
  - Peripheral swelling [None]
